FAERS Safety Report 6107795-X (Version None)
Quarter: 2009Q1

REPORT INFORMATION
  Report Type: 
  Country: None (occurrence: None)
  Receive Date: 20090309
  Receipt Date: 20090304
  Transmission Date: 20090719
  Serious: Yes (Hospitalization)
  Sender: FDA-Public Use
  Company Number: B0562267A

PATIENT
  Age: 46 Year
  Sex: Female
  Weight: 122 kg

DRUGS (4)
  1. LAPATINIB [Suspect]
     Indication: BREAST CANCER
     Dosage: 1000MG PER DAY
     Route: 048
     Dates: start: 20090117
  2. TRASTUZUMAB [Suspect]
     Indication: BREAST CANCER
     Route: 042
     Dates: start: 20090116
  3. TAMOXIFEN CITRATE [Concomitant]
     Indication: BREAST CANCER
     Dosage: 20MG PER DAY
     Route: 048
     Dates: start: 20090107
  4. ZOLADEX [Concomitant]
     Indication: BREAST CANCER
     Dosage: 3.6MG MONTHLY
     Route: 058
     Dates: start: 20090107

REACTIONS (7)
  - ABDOMINAL PAIN [None]
  - DIARRHOEA [None]
  - FEELING HOT [None]
  - INFLUENZA LIKE ILLNESS [None]
  - MALAISE [None]
  - VIRAL INFECTION [None]
  - VOMITING [None]
